FAERS Safety Report 6527668-8 (Version None)
Quarter: 2010Q1

REPORT INFORMATION
  Report Type: 
  Country: None (occurrence: None)
  Receive Date: 20100105
  Receipt Date: 20091222
  Transmission Date: 20100710
  Serious: Yes (Disabling, Other)
  Sender: FDA-Public Use
  Company Number: DE-GENENTECH-274514

PATIENT
  Sex: Male

DRUGS (4)
  1. RANIBIZUMAB [Suspect]
     Indication: MACULAR DEGENERATION
     Dosage: UNK
     Route: 031
     Dates: start: 20080825
  2. RANIBIZUMAB [Suspect]
     Dosage: UNK
     Route: 031
     Dates: start: 20080923
  3. RANIBIZUMAB [Suspect]
     Dosage: UNK
     Route: 031
     Dates: start: 20081029
  4. FLUORESCEIN [Concomitant]
     Indication: DRUG USE FOR UNKNOWN INDICATION

REACTIONS (2)
  - RETINAL PIGMENT EPITHELIAL TEAR [None]
  - VISUAL ACUITY REDUCED [None]
